FAERS Safety Report 15661175 (Version 1)
Quarter: 2018Q4

REPORT INFORMATION
  Report Type: Report from Study
  Country: NZ (occurrence: NZ)
  Receive Date: 20181127
  Receipt Date: 20181127
  Transmission Date: 20190205
  Serious: Yes (Life-Threatening, Disabling)
  Sender: FDA-Public Use
  Company Number: NZ-PFIZER INC-2018482586

PATIENT
  Age: 40 Year
  Sex: Female

DRUGS (1)
  1. MEDROXYPROGESTERONE ACETATE. [Suspect]
     Active Substance: MEDROXYPROGESTERONE ACETATE
     Indication: CONTRACEPTION
     Dosage: UNK (INJECTION)
     Route: 030

REACTIONS (1)
  - Sciatic nerve injury [Unknown]
